FAERS Safety Report 13602834 (Version 3)
Quarter: 2017Q2

REPORT INFORMATION
  Report Type: Spontaneous
  Country: FR (occurrence: FR)
  Receive Date: 20170601
  Receipt Date: 20170614
  Transmission Date: 20170830
  Serious: Yes (Other)
  Sender: FDA-Public Use
  Company Number: FR-PFIZER INC-2017238963

PATIENT

DRUGS (2)
  1. DONEPEZIL HCL [Interacting]
     Active Substance: DONEPEZIL HYDROCHLORIDE
     Dosage: UNK
  2. SERTRALINE [Suspect]
     Active Substance: SERTRALINE HYDROCHLORIDE
     Dosage: UNK

REACTIONS (2)
  - Drug interaction [Recovered/Resolved]
  - Hepatitis fulminant [Recovered/Resolved]
